FAERS Safety Report 9718420 (Version 1)
Quarter: 2013Q4

REPORT INFORMATION
  Report Type: Not Available
  Country: US (occurrence: US)
  Receive Date: 20131125
  Receipt Date: 20131125
  Transmission Date: 20140711
  Serious: No
  Sender: FDA-Public Use
  Company Number: US-VIVUS-2013V1000547

PATIENT
  Age: 55 Year
  Sex: Female
  Weight: 79.45 kg

DRUGS (4)
  1. QSYMIA 3.75MG/23MG [Suspect]
     Indication: WEIGHT DECREASED
     Route: 048
     Dates: start: 20130716
  2. QSYMIA 3.75MG/23MG [Suspect]
     Indication: HYPERTENSION
  3. EXFORGE [Concomitant]
     Indication: HYPERTENSION
     Dosage: 5 - 160 - 12.5 MG
     Route: 048
  4. ESTRADIOL [Concomitant]
     Indication: HORMONE REPLACEMENT THERAPY
     Route: 048

REACTIONS (3)
  - Eye pruritus [Not Recovered/Not Resolved]
  - Eye swelling [Not Recovered/Not Resolved]
  - Blood pressure decreased [Recovered/Resolved]
